FAERS Safety Report 9580808 (Version 1)
Quarter: 2013Q4

REPORT INFORMATION
  Report Type: Spontaneous
  Country: BE (occurrence: BE)
  Receive Date: 20131002
  Receipt Date: 20131002
  Transmission Date: 20140711
  Serious: Yes (Other)
  Sender: FDA-Public Use
  Company Number: BE-PFIZER INC-2013280417

PATIENT
  Age: 5 Year
  Sex: Female

DRUGS (13)
  1. TAZOCIN [Suspect]
     Dosage: UNK
     Dates: start: 20130206, end: 20130222
  2. VANCOMYCIN HCL [Suspect]
     Dosage: UNK
     Dates: start: 20130212, end: 20130301
  3. AVELOX [Suspect]
     Dosage: UNK
     Dates: start: 20130206, end: 20130302
  4. PARACETAMOL [Concomitant]
     Dosage: UNK
     Dates: start: 20130126, end: 20130214
  5. ZANTAC [Concomitant]
     Dosage: UNK
     Dates: start: 20130126, end: 20130214
  6. DYTENZIDE [Concomitant]
     Dosage: UNK
     Dates: start: 20130126, end: 20130214
  7. UROKINASE [Concomitant]
     Dosage: UNK
     Dates: start: 20130126, end: 20130214
  8. HEPARIN [Concomitant]
     Dosage: UNK
     Dates: start: 20130126, end: 20130214
  9. CATAPRESSAN [Concomitant]
     Dosage: UNK
     Dates: start: 20130126, end: 20130214
  10. MORPHINE [Concomitant]
     Dosage: UNK
     Dates: start: 20130126, end: 20130214
  11. DORMICUM [Concomitant]
     Dosage: UNK
     Dates: start: 20130126, end: 20130214
  12. MOTILIUM [Concomitant]
     Dosage: UNK
     Dates: start: 20130126, end: 20130214
  13. KETOROLAC [Concomitant]
     Dosage: UNK
     Dates: start: 20130126, end: 20130214

REACTIONS (2)
  - Drug reaction with eosinophilia and systemic symptoms [Unknown]
  - Type IV hypersensitivity reaction [Unknown]
